FAERS Safety Report 13363271 (Version 1)
Quarter: 2017Q1

REPORT INFORMATION
  Report Type: Spontaneous
  Country: DE (occurrence: DE)
  Receive Date: 20170323
  Receipt Date: 20170323
  Transmission Date: 20170429
  Serious: Yes (Other)
  Sender: FDA-Public Use
  Company Number: DE-CELLTRION HEALTHCARE HUNGARY KFT-2016DE009166

PATIENT

DRUGS (12)
  1. REMSIMA [Suspect]
     Active Substance: INFLIXIMAB
     Dosage: UNK,EVERY 8 WEEKS
     Route: 042
     Dates: start: 20150605, end: 20150605
  2. REMSIMA [Suspect]
     Active Substance: INFLIXIMAB
     Dosage: UNK,EVERY 8 WEEKS
     Route: 042
     Dates: start: 20151001, end: 20151001
  3. REMSIMA [Suspect]
     Active Substance: INFLIXIMAB
     Dosage: UNK,EVERY 8 WEEKS
     Route: 042
     Dates: start: 20160318, end: 20160318
  4. REMSIMA [Suspect]
     Active Substance: INFLIXIMAB
     Dosage: UNK,EVERY 8 WEEKS
     Route: 042
     Dates: start: 20150505, end: 20150505
  5. REMSIMA [Suspect]
     Active Substance: INFLIXIMAB
     Dosage: UNK,EVERY 8 WEEKS
     Route: 042
     Dates: start: 20150807, end: 20150807
  6. REMSIMA [Suspect]
     Active Substance: INFLIXIMAB
     Dosage: UNK,EVERY 8 WEEKS
     Route: 042
     Dates: start: 20151126, end: 20151126
  7. REMSIMA [Suspect]
     Active Substance: INFLIXIMAB
     Dosage: UNK,EVERY 8 WEEKS
     Route: 042
     Dates: start: 20160121, end: 20160121
  8. REMSIMA [Suspect]
     Active Substance: INFLIXIMAB
     Dosage: UNK,EVERY 8 WEEKS
     Route: 042
     Dates: start: 20160707, end: 20160707
  9. REMSIMA [Suspect]
     Active Substance: INFLIXIMAB
     Indication: CROHN^S DISEASE
     Dosage: UNK,EVERY 8 WEEKS
     Route: 042
     Dates: start: 20150421, end: 20150421
  10. REMSIMA [Suspect]
     Active Substance: INFLIXIMAB
     Dosage: UNK,EVERY 8 WEEKS
     Route: 042
     Dates: start: 20160901, end: 20160901
  11. REMSIMA [Suspect]
     Active Substance: INFLIXIMAB
     Dosage: UNK
     Route: 042
     Dates: start: 201702, end: 201702
  12. REMSIMA [Suspect]
     Active Substance: INFLIXIMAB
     Dosage: UNK,EVERY 8 WEEKS
     Route: 042
     Dates: start: 20160512, end: 20160512

REACTIONS (3)
  - Oligohydramnios [Unknown]
  - Exposure during pregnancy [Unknown]
  - Exposure during breast feeding [Unknown]
